FAERS Safety Report 18280845 (Version 2)
Quarter: 2020Q3

REPORT INFORMATION
  Report Type: Spontaneous
  Country: US (occurrence: US)
  Receive Date: 20200917
  Receipt Date: 20200921
  Transmission Date: 20201103
  Serious: Yes (Other)
  Sender: FDA-Public Use
  Company Number: US-JNJFOC-20200921060

PATIENT

DRUGS (6)
  1. MENTHOL. [Suspect]
     Active Substance: MENTHOL
     Indication: PRODUCT USED FOR UNKNOWN INDICATION
     Route: 065
  2. DIPHENHYDRAMINE HYDROCHLORIDE. [Suspect]
     Active Substance: DIPHENHYDRAMINE HYDROCHLORIDE
     Indication: PRODUCT USED FOR UNKNOWN INDICATION
     Route: 065
  3. PARACETAMOL [Suspect]
     Active Substance: ACETAMINOPHEN
     Indication: PRODUCT USED FOR UNKNOWN INDICATION
     Route: 065
  4. IBUPROFEN. [Suspect]
     Active Substance: IBUPROFEN
     Indication: PRODUCT USED FOR UNKNOWN INDICATION
     Route: 065
  5. PSEUDOEPHEDRINE HYDROCHLORIDE. [Suspect]
     Active Substance: PSEUDOEPHEDRINE HYDROCHLORIDE
     Indication: PRODUCT USED FOR UNKNOWN INDICATION
     Route: 065
  6. PHENYLEPHRINE HYDROCHLORIDE. [Suspect]
     Active Substance: PHENYLEPHRINE HYDROCHLORIDE
     Indication: PRODUCT USED FOR UNKNOWN INDICATION
     Route: 065

REACTIONS (56)
  - Cough [Unknown]
  - Diarrhoea [Unknown]
  - Burning sensation [Unknown]
  - Chest pain [Unknown]
  - Thirst [Unknown]
  - Drooling [Unknown]
  - Ear pain [Unknown]
  - Hypersomnia [Unknown]
  - Throat irritation [Unknown]
  - Wheezing [Unknown]
  - Nausea [Unknown]
  - Flushing [Unknown]
  - Vertigo [Unknown]
  - Overweight [Unknown]
  - Dizziness [Unknown]
  - Constipation [Unknown]
  - Myalgia [Unknown]
  - Alopecia [Unknown]
  - Rash [Unknown]
  - Seizure [Unknown]
  - Pain [Unknown]
  - Abdominal pain [Unknown]
  - Dry skin [Unknown]
  - Somnolence [Unknown]
  - Drug ineffective [Unknown]
  - Tremor [Unknown]
  - Lethargy [Unknown]
  - Alcoholism [Unknown]
  - Amnesia [Unknown]
  - Arthralgia [Unknown]
  - Dry mouth [Unknown]
  - Eye pruritus [Unknown]
  - Flatulence [Unknown]
  - Syncope [Unknown]
  - Headache [Unknown]
  - Back pain [Unknown]
  - Hunger [Unknown]
  - Dry eye [Unknown]
  - Malaise [Unknown]
  - Sinus headache [Unknown]
  - Starvation [Unknown]
  - Fatigue [Unknown]
  - Insomnia [Unknown]
  - Dyspnoea [Unknown]
  - Vomiting [Unknown]
  - Anxiety disorder [Unknown]
  - Agitation [Unknown]
  - Abdominal discomfort [Unknown]
  - Chills [Unknown]
  - Ear pruritus [Unknown]
  - Pruritus [Unknown]
  - Blindness [Unknown]
  - Toothache [Unknown]
  - Sneezing [Unknown]
  - Snoring [Unknown]
  - Stress [Unknown]
